FAERS Safety Report 5279790-4 (Version None)
Quarter: 2007Q1

REPORT INFORMATION
  Report Type: 
  Country: None (occurrence: None)
  Receive Date: 20061220
  Receipt Date: 20060717
  Transmission Date: 20070707
  Serious: Yes (Hospitalization)
  Sender: FDA-Public Use
  Company Number: 255091

PATIENT
  Age: 16 Year
  Sex: Male
  Weight: 70.3 kg

DRUGS (2)
  1. NOVOLOG MIX 70/30 [Suspect]
     Indication: DIABETES MELLITUS INSULIN-DEPENDENT
     Dosage: 25 IU, BID, SUBCUTANEOUS
     Route: 058
     Dates: start: 20010101, end: 20060713
  2. HUMULIN R [Concomitant]

REACTIONS (1)
  - BLOOD GLUCOSE INCREASED [None]
